FAERS Safety Report 8052860-3 (Version None)
Quarter: 2012Q1

REPORT INFORMATION
  Report Type: 
  Country: None (occurrence: None)
  Receive Date: 20120118
  Receipt Date: 20120112
  Transmission Date: 20120608
  Serious: Yes (Other)
  Sender: FDA-Public Use
  Company Number: SE-JNJFOC-20120105143

PATIENT
  Age: 21 Year
  Sex: Male

DRUGS (6)
  1. ZYPREXA [Suspect]
     Indication: PSYCHOTIC DISORDER
     Route: 065
  2. ZYPREXA [Suspect]
     Route: 065
  3. ZYPREXA [Suspect]
     Route: 065
  4. ZOPIKLON [Concomitant]
     Indication: SLEEP DISORDER THERAPY
     Route: 065
  5. HALDOL [Suspect]
     Indication: PSYCHOTIC DISORDER
     Route: 065
  6. ZOPIKLON [Concomitant]
     Indication: PSYCHOTIC DISORDER
     Route: 065

REACTIONS (11)
  - THYROID FUNCTION TEST ABNORMAL [None]
  - BLOOD TRIGLYCERIDES INCREASED [None]
  - ANXIETY [None]
  - MUSCULAR WEAKNESS [None]
  - BLOOD GLUCOSE INCREASED [None]
  - FATIGUE [None]
  - DYSPNOEA [None]
  - HYPERHIDROSIS [None]
  - PALPITATIONS [None]
  - BLOOD PROLACTIN INCREASED [None]
  - WEIGHT INCREASED [None]
